FAERS Safety Report 9463532 (Version 2)
Quarter: 2013Q3

REPORT INFORMATION
  Report Type: Spontaneous
  Country: US (occurrence: US)
  Receive Date: 20130819
  Receipt Date: 20130830
  Transmission Date: 20140515
  Serious: Yes (Hospitalization, Disabling, Other)
  Sender: FDA-Public Use
  Company Number: US-009507513-1308USA006051

PATIENT
  Sex: Female

DRUGS (4)
  1. FOSAMAX [Suspect]
     Indication: BONE DISORDER
     Dosage: UNK, QW
     Route: 048
     Dates: start: 200508, end: 201307
  2. FOSAMAX [Suspect]
     Indication: BONE DISORDER
  3. CYANOCOBALAMIN [Concomitant]
  4. CHOLECALCIFEROL [Concomitant]

REACTIONS (6)
  - Fall [Unknown]
  - Cerebrovascular accident [Unknown]
  - Upper limb fracture [Unknown]
  - Transient ischaemic attack [Unknown]
  - Osteonecrosis of jaw [Not Recovered/Not Resolved]
  - Jaw operation [Unknown]
